FAERS Safety Report 10020706 (Version 1)
Quarter: 2014Q1

REPORT INFORMATION
  Report Type: Spontaneous
  Country: IN (occurrence: IN)
  Receive Date: 20140319
  Receipt Date: 20140319
  Transmission Date: 20141002
  Serious: Yes (Other)
  Sender: FDA-Public Use
  Company Number: IN-009507513-1403IND007575

PATIENT
  Sex: Female

DRUGS (1)
  1. JANUMET [Suspect]
     Indication: DIABETES MELLITUS
     Dosage: 1 DF, QD
     Route: 048

REACTIONS (7)
  - Lip dry [Not Recovered/Not Resolved]
  - Local swelling [Not Recovered/Not Resolved]
  - Local swelling [Not Recovered/Not Resolved]
  - Polydipsia [Not Recovered/Not Resolved]
  - Leukoplakia oral [Not Recovered/Not Resolved]
  - Face oedema [Not Recovered/Not Resolved]
  - Inappropriate schedule of drug administration [Unknown]
